FAERS Safety Report 7304244-0 (Version None)
Quarter: 2011Q1

REPORT INFORMATION
  Report Type: 
  Country: None (occurrence: None)
  Receive Date: 20110221
  Receipt Date: 20110207
  Transmission Date: 20110831
  Serious: Yes (Other)
  Sender: FDA-Public Use
  Company Number: US-BAYER-201032562NA

PATIENT
  Sex: Female
  Weight: 71.02 kg

DRUGS (14)
  1. UNCODEABLE ^UNCLASSIFIABLE^ [Concomitant]
     Dosage: 750 MG, UNK
     Route: 048
     Dates: start: 20081211
  2. ULTRAM [Concomitant]
     Dosage: 50 MG, TID
     Dates: start: 20081002
  3. ASA [Concomitant]
     Dosage: UNK UNK, QD
     Dates: start: 20081002
  4. PREMARIN [Concomitant]
     Dosage: UNK UNK, QD
     Dates: start: 20081201
  5. ADIPEX [Concomitant]
     Dosage: UNK
     Dates: start: 20081002
  6. YASMIN [Suspect]
     Indication: PRODUCT USED FOR UNKNOWN INDICATION
     Route: 048
     Dates: start: 20080801
  7. LORAZEPAM [Concomitant]
     Dosage: UNK
     Dates: start: 20081002
  8. KLONOPIN [Concomitant]
     Dosage: UNK
     Dates: start: 20081002
  9. YAZ [Suspect]
     Indication: PRODUCT USED FOR UNKNOWN INDICATION
     Route: 048
     Dates: start: 20080801
  10. MOTRIN [Concomitant]
     Indication: PAIN
     Dosage: 800 MG, PRN
     Route: 048
     Dates: start: 20081211
  11. BUPROPION [Concomitant]
     Dosage: 150 MG, QD
     Route: 048
     Dates: start: 20081002
  12. SKELAXIN [Concomitant]
     Dosage: 800 MG, QID
     Route: 048
     Dates: start: 20081002
  13. BENTYL [Concomitant]
     Dosage: 20 MG, BID
     Route: 048
     Dates: start: 20081002
  14. ATIVAN [Concomitant]
     Dosage: 0.5 MG, TID
     Dates: start: 20081211

REACTIONS (1)
  - CEREBROVASCULAR ACCIDENT [None]
